FAERS Safety Report 12438844 (Version 2)
Quarter: 2016Q3

REPORT INFORMATION
  Report Type: Report from Study
  Country: NL (occurrence: NL)
  Receive Date: 20160606
  Receipt Date: 20160719
  Transmission Date: 20161109
  Serious: Yes (Hospitalization, Other)
  Sender: FDA-Public Use
  Company Number: NL-ABBVIE-16P-114-1642740-00

PATIENT
  Age: 69 Year
  Sex: Male
  Weight: 87 kg

DRUGS (7)
  1. ENZALUTAMIDE [Concomitant]
     Active Substance: ENZALUTAMIDE
     Indication: PROSTATE CANCER
     Route: 048
     Dates: start: 201604
  2. LOSAMAX [Concomitant]
     Indication: PROSTATE CANCER
     Route: 048
     Dates: start: 201604
  3. CRESTOR [Concomitant]
     Active Substance: ROSUVASTATIN CALCIUM
     Indication: PRODUCT USED FOR UNKNOWN INDICATION
     Route: 048
     Dates: start: 201604
  4. GAEPID [Concomitant]
     Indication: ANTICOAGULANT THERAPY
     Route: 048
  5. BICALUTAMIDE. [Concomitant]
     Active Substance: BICALUTAMIDE
     Indication: PROSTATE CANCER
     Route: 048
     Dates: start: 201406, end: 201604
  6. VERAPAMIL [Concomitant]
     Active Substance: VERAPAMIL HYDROCHLORIDE
     Indication: CLUSTER HEADACHE
     Route: 048
     Dates: start: 201606
  7. LUCRIN DEPOT [Suspect]
     Active Substance: LEUPROLIDE ACETATE
     Indication: PROSTATE CANCER
     Route: 050
     Dates: start: 20130711

REACTIONS (5)
  - Prostate cancer metastatic [Unknown]
  - Groin pain [Not Recovered/Not Resolved]
  - Pain [Unknown]
  - Transient ischaemic attack [Recovering/Resolving]
  - Groin pain [Recovered/Resolved]

NARRATIVE: CASE EVENT DATE: 201603
